FAERS Safety Report 4340740-6 (Version None)
Quarter: 2004Q2

REPORT INFORMATION
  Report Type: 
  Country: None (occurrence: None)
  Receive Date: 20040415
  Receipt Date: 20040405
  Transmission Date: 20050107
  Serious: Yes (Other)
  Sender: FDA-Public Use
  Company Number: 2004-01477

PATIENT
  Age: 4 Year
  Sex: 0

DRUGS (4)
  1. PREDNISONE [Suspect]
     Indication: IMMUNOSUPPRESSION
     Dosage: ORAL
     Route: 048
  2. CYCLOSPORINE [Suspect]
     Indication: IMMUNOSUPPRESSION
     Dosage: ORAL
     Route: 048
  3. AZATHIOPRINE [Suspect]
     Indication: IMMUNOSUPPRESSION
     Dosage: ORAL
     Route: 048
  4. GROWTH HORMONE (GROWTH HORMONE) [Suspect]

REACTIONS (2)
  - CLEAR CELL CARCINOMA OF THE KIDNEY [None]
  - COMPLICATIONS OF TRANSPLANT SURGERY [None]
